FAERS Safety Report 5137601-1 (Version None)
Quarter: 2006Q4

REPORT INFORMATION
  Report Type: 
  Country: None (occurrence: None)
  Receive Date: 20061030
  Receipt Date: 20051123
  Transmission Date: 20070319
  Serious: Yes (Other)
  Sender: FDA-Public Use
  Company Number: US-GLAXOSMITHKLINE-A0584150A

PATIENT
  Age: 68 Year
  Sex: Female

DRUGS (7)
  1. ADVAIR HFA [Suspect]
     Indication: ASTHMA
     Dosage: 1PUFF TWICE PER DAY
     Route: 055
  2. PENTOXIFYLLINE [Concomitant]
  3. POTASSIUM ACETATE [Concomitant]
  4. ATENOLOL [Concomitant]
  5. QUININE SULFATE [Concomitant]
  6. ALBUTEROL [Concomitant]
  7. TENORETIC 100 [Concomitant]

REACTIONS (3)
  - ASTHMA [None]
  - DYSPNOEA [None]
  - PHARMACEUTICAL PRODUCT COMPLAINT [None]
